FAERS Safety Report 8369420-7 (Version None)
Quarter: 2012Q2

REPORT INFORMATION
  Report Type: 
  Country: None (occurrence: None)
  Receive Date: 20120516
  Receipt Date: 20120516
  Transmission Date: 20120825
  Serious: Yes (Other)
  Sender: FDA-Public Use
  Company Number: None

PATIENT
  Sex: Female
  Weight: 73.0291 kg

DRUGS (1)
  1. AMITIZA [Suspect]
     Indication: CONSTIPATION
     Dosage: 1 TO 2 CAPSULES AS NEEDED DAILY PO
     Route: 048
     Dates: start: 20120429, end: 20120501

REACTIONS (2)
  - DYSPNOEA [None]
  - CHEST DISCOMFORT [None]
